FAERS Safety Report 20146953 (Version 2)
Quarter: 2022Q1

REPORT INFORMATION
  Report Type: Report from Study
  Country: FR (occurrence: FR)
  Receive Date: 20211203
  Receipt Date: 20220225
  Transmission Date: 20220424
  Serious: Yes (Hospitalization)
  Sender: FDA-Public Use
  Company Number: FR-BIOMARINAP-FR-2021-139804

PATIENT

DRUGS (1)
  1. VIMIZIM [Suspect]
     Active Substance: ELOSULFASE ALFA
     Indication: Mucopolysaccharidosis IV
     Dosage: 2 MILLIGRAM/KILOGRAM
     Route: 042

REACTIONS (1)
  - Knee deformity [Recovered/Resolved]

NARRATIVE: CASE EVENT DATE: 20180927
